FAERS Safety Report 8135462-X (Version None)
Quarter: 2012Q1

REPORT INFORMATION
  Report Type: 
  Country: None (occurrence: None)
  Receive Date: 20120214
  Receipt Date: 20120131
  Transmission Date: 20120608
  Serious: Yes (Death, Hospitalization)
  Sender: FDA-Public Use
  Company Number: KR-CELGENEUS-286-21880-12010213

PATIENT
  Sex: Female

DRUGS (5)
  1. OXYCONTIN [Concomitant]
     Indication: ARTHRALGIA
     Route: 048
     Dates: end: 20120101
  2. CALCIUM/VITAMIN D [Concomitant]
     Route: 048
     Dates: start: 20100601, end: 20120101
  3. CALCIUM/VITAMIN D [Concomitant]
     Indication: VITAMIN SUPPLEMENTATION
  4. DOXYFYLINE [Concomitant]
     Route: 065
     Dates: start: 20110801, end: 20120101
  5. REVLIMID [Suspect]
     Indication: MULTIPLE MYELOMA
     Dosage: 25 MILLIGRAM
     Route: 048
     Dates: start: 20111121, end: 20120101

REACTIONS (2)
  - PNEUMOCYSTIS JIROVECI PNEUMONIA [None]
  - RESPIRATORY FAILURE [None]
